FAERS Safety Report 8920759 (Version 1)
Quarter: 2012Q4

REPORT INFORMATION
  Report Type: 
  Country: US (occurrence: US)
  Receive Date: 20121122
  Receipt Date: 20121122
  Transmission Date: 20130627
  Serious: No
  Sender: FDA-Public Use
  Company Number: US-009507513-1211USA005433

PATIENT

DRUGS (1)
  1. PEGINTRON [Suspect]
     Dosage: UNK

REACTIONS (4)
  - Overdose [Unknown]
  - Accidental exposure to product [Unknown]
  - Wrong technique in drug usage process [Unknown]
  - No adverse event [Unknown]
